FAERS Safety Report 12646724 (Version 2)
Quarter: 2016Q3

REPORT INFORMATION
  Report Type: Spontaneous
  Country: NL (occurrence: NL)
  Receive Date: 20160812
  Receipt Date: 20160824
  Transmission Date: 20161109
  Serious: Yes (Hospitalization, Other)
  Sender: FDA-Public Use
  Company Number: NL-APOTEX-2016AP010278

PATIENT

DRUGS (3)
  1. DOCETAXEL CONCENTRAAT VOOR OPLOSSING VOOR INFUSIE [Suspect]
     Active Substance: DOCETAXEL
     Indication: LIP AND/OR ORAL CAVITY CANCER
     Dosage: UNK
     Route: 065
     Dates: start: 20141105
  2. FLUOROURACIL 5 FU [Suspect]
     Active Substance: FLUOROURACIL
     Indication: LIP AND/OR ORAL CAVITY CANCER
     Dosage: UNK
     Route: 065
     Dates: start: 20141105
  3. CISPLATIN. [Suspect]
     Active Substance: CISPLATIN
     Indication: LIP AND/OR ORAL CAVITY CANCER
     Dosage: UNK
     Route: 065
     Dates: start: 20141105

REACTIONS (4)
  - Toxicity to various agents [Unknown]
  - Diarrhoea [Unknown]
  - Neutropenia [Unknown]
  - Thrombocytopenia [Unknown]
